FAERS Safety Report 13064073 (Version 1)
Quarter: 2016Q4

REPORT INFORMATION
  Report Type: Spontaneous
  Country: US (occurrence: US)
  Receive Date: 20161227
  Receipt Date: 20161227
  Transmission Date: 20170207
  Serious: No
  Sender: FDA-Public Use
  Company Number: US-009507513-1612USA002491

PATIENT
  Sex: Male

DRUGS (2)
  1. PROPECIA [Suspect]
     Active Substance: FINASTERIDE
     Indication: ALOPECIA
     Dosage: 1 MG/ONCE A DAY
     Route: 048
     Dates: start: 2009, end: 2012
  2. PROPECIA [Suspect]
     Active Substance: FINASTERIDE
     Dosage: 1 MG/ONCE A DAY
     Route: 048
     Dates: start: 2015, end: 2016

REACTIONS (1)
  - Peyronie^s disease [Not Recovered/Not Resolved]
